APPROVED DRUG PRODUCT: CHLOROQUINE PHOSPHATE
Active Ingredient: CHLOROQUINE PHOSPHATE
Strength: 250MG
Dosage Form/Route: TABLET;ORAL
Application: A091621 | Product #001 | TE Code: AA
Applicant: NATCO PHARMA LIMITED
Approved: Jan 21, 2011 | RLD: No | RS: Yes | Type: RX